FAERS Safety Report 9731441 (Version 2)
Quarter: 2014Q2

REPORT INFORMATION
  Report Type: Spontaneous
  Country: IT (occurrence: None)
  Receive Date: 20131203
  Receipt Date: 20140611
  Transmission Date: 20141212
  Serious: Yes (Other)
  Sender: FDA-Public Use
  Company Number: FK201305129

PATIENT
  Age: 75 Year
  Sex: Male
  Weight: 89 kg

DRUGS (5)
  1. IRINOTECAN [Suspect]
     Indication: RECTOSIGMOID CANCER
     Dosage: 340 MG, CYCLICAL, INTRAVENOUS
     Route: 042
     Dates: start: 20130806, end: 20131022
  2. AVASTIN (BEVACIZUMAB) (BEVACIZUMAB) [Suspect]
     Indication: RECTOSIGMOID CANCER
     Dosage: 400 MG, CYCLICAL, INTRAVENOUS
     Route: 042
     Dates: start: 20130820, end: 20130917
  3. FLUOROURACILE [Suspect]
     Indication: RECTOSIGMOID CANCER
     Route: 042
     Dates: start: 20130806, end: 20131023
  4. SOLDESAM (DEXAMETHASONE SODIUM PHOSPHATE) [Concomitant]
  5. ALOXI (PALONOSETRON HYDROCHLORIDE) [Concomitant]

REACTIONS (1)
  - Deep vein thrombosis [None]
